FAERS Safety Report 7235772-4 (Version None)
Quarter: 2011Q1

REPORT INFORMATION
  Report Type: 
  Country: None (occurrence: None)
  Receive Date: 20110120
  Receipt Date: 20110110
  Transmission Date: 20110831
  Serious: No
  Sender: FDA-Public Use
  Company Number: US-B.I. PHARMACEUTICALS,INC./RIDGEFIELD-2011-BP-01037BP

PATIENT
  Sex: Male

DRUGS (2)
  1. PRADAXA [Suspect]
     Dosage: 300 MG
     Route: 048
     Dates: start: 20110105
  2. PRADAXA [Suspect]
     Indication: HEART RATE IRREGULAR
     Dosage: 300 MG
     Route: 048
     Dates: start: 20101228, end: 20110101

REACTIONS (3)
  - DISCOMFORT [None]
  - NAUSEA [None]
  - NERVOUSNESS [None]
